FAERS Safety Report 6609394-X (Version None)
Quarter: 2010Q1

REPORT INFORMATION
  Report Type: 
  Country: None (occurrence: None)
  Receive Date: 20100302
  Receipt Date: 20100222
  Transmission Date: 20100710
  Serious: Yes (Hospitalization, Disabling, Other)
  Sender: FDA-Public Use
  Company Number: JP-BRACCO-003136

PATIENT
  Sex: Female

DRUGS (6)
  1. THYRADIN [Concomitant]
     Indication: HYPOTHYROIDISM
     Route: 048
     Dates: start: 20070701
  2. IOMERON-150 [Concomitant]
     Indication: ARTERIOGRAM CORONARY
     Route: 042
     Dates: start: 20091028, end: 20091028
  3. ASPIRIN [Concomitant]
     Indication: THROMBOSIS PROPHYLAXIS
     Route: 048
     Dates: start: 20091029
  4. LANSOPRAZOLE [Suspect]
     Indication: PROPHYLAXIS AGAINST GASTROINTESTINAL ULCER
     Route: 048
     Dates: start: 20091129, end: 20100110
  5. IOPAMIDOL [Suspect]
     Indication: CARDIAC IMAGING PROCEDURE
     Route: 042
     Dates: start: 20091207, end: 20091207
  6. IOPAMIDOL [Suspect]
     Indication: AORTIC ANEURYSM
     Route: 042
     Dates: start: 20091207, end: 20091207

REACTIONS (2)
  - BLOOD CREATININE INCREASED [None]
  - TUBULOINTERSTITIAL NEPHRITIS [None]
